FAERS Safety Report 8073001-2 (Version None)
Quarter: 2012Q1

REPORT INFORMATION
  Report Type: 
  Country: None (occurrence: None)
  Receive Date: 20120126
  Receipt Date: 20120118
  Transmission Date: 20120608
  Serious: Yes (Other)
  Sender: FDA-Public Use
  Company Number: CA-ASTRAZENECA-2012SE03657

PATIENT
  Age: 71 Year
  Sex: Male

DRUGS (17)
  1. PRAMIPEXOLE DIHYCHLLORIDE [Concomitant]
     Indication: RESTLESS LEGS SYNDROME
     Route: 048
  2. NIFEDIPINE [Concomitant]
     Route: 048
  3. LORAZEPAM [Concomitant]
  4. DALTEPARIN SODIUM [Concomitant]
     Dates: start: 20040101
  5. ALBUTEROL SULFATE AUTOHALER [Concomitant]
     Indication: ASTHMA
     Route: 055
  6. FLUTICASONE AND SALMETEROL [Concomitant]
     Indication: ASTHMA
     Route: 055
  7. APO-FOLIC ACID [Concomitant]
     Indication: ANAEMIA
  8. VITAMIN B-12 [Concomitant]
  9. PREDNISONE [Concomitant]
     Indication: LUNG DISORDER
     Route: 048
  10. TOBRAMYCIN [Concomitant]
     Indication: EYE DISORDER
  11. RISEDRONATE SODIUM [Concomitant]
     Indication: OSTEOPOROSIS
     Route: 058
  12. OXYCONTIN [Concomitant]
     Indication: FIBROMYALGIA
     Route: 048
  13. TOLTERODINE TARTRATE [Concomitant]
     Indication: BLADDER SPASM
     Route: 048
  14. OMEPRAZOLE [Suspect]
     Route: 048
  15. ALENDRONATE SODIUM [Concomitant]
     Route: 048
  16. VITAMIN B6 [Concomitant]
  17. CRESTOR [Suspect]
     Route: 048
     Dates: start: 20110607, end: 20110801

REACTIONS (8)
  - OEDEMA PERIPHERAL [None]
  - WEIGHT DECREASED [None]
  - BLOOD URINE PRESENT [None]
  - BLOOD CREATINE PHOSPHOKINASE INCREASED [None]
  - HAEMOPTYSIS [None]
  - MYALGIA [None]
  - ARTHRALGIA [None]
  - INSOMNIA [None]
